FAERS Safety Report 15562041 (Version 3)
Quarter: 2019Q2

REPORT INFORMATION
  Report Type: Report from Study
  Country: US (occurrence: US)
  Receive Date: 20181029
  Receipt Date: 20190404
  Transmission Date: 20190711
  Serious: No
  Sender: FDA-Public Use
  Company Number: US-SA-2018SA297069

PATIENT
  Age: 60 Year
  Sex: Male
  Weight: 92.5 kg

DRUGS (2)
  1. DUPILUMAB [Suspect]
     Active Substance: DUPILUMAB
     Indication: DERMATITIS ATOPIC
     Dosage: 600 MG, 1X
     Route: 058
     Dates: start: 20180930, end: 20180930
  2. DUPILUMAB [Suspect]
     Active Substance: DUPILUMAB
     Dosage: 300 MG, QOW
     Route: 058
     Dates: start: 2018

REACTIONS (7)
  - Eye irritation [Unknown]
  - Injection site pruritus [Unknown]
  - Injection site reaction [Unknown]
  - Drug ineffective [Not Recovered/Not Resolved]
  - Injection site erythema [Unknown]
  - Eczema [Not Recovered/Not Resolved]
  - Injection site inflammation [Unknown]
